FAERS Safety Report 9710550 (Version 2)
Quarter: 2013Q4

REPORT INFORMATION
  Report Type: Spontaneous
  Country: US (occurrence: US)
  Receive Date: 20131126
  Receipt Date: 20131126
  Transmission Date: 20140711
  Serious: No
  Sender: FDA-Public Use
  Company Number: US-BRISTOL-MYERS SQUIBB COMPANY-18884924

PATIENT
  Age: 59 Year
  Sex: Male

DRUGS (5)
  1. BYETTA [Suspect]
  2. HUMALOG [Concomitant]
     Dosage: HUMALOG 70/30
  3. AVANDIA [Concomitant]
  4. ACTOS [Concomitant]
  5. METFORMIN [Concomitant]

REACTIONS (2)
  - Abdominal discomfort [Recovered/Resolved with Sequelae]
  - Abdominal pain upper [Unknown]
